FAERS Safety Report 6150839-X (Version None)
Quarter: 2009Q2

REPORT INFORMATION
  Report Type: 
  Country: None (occurrence: None)
  Receive Date: 20090408
  Receipt Date: 20090327
  Transmission Date: 20091009
  Serious: Yes (Other)
  Sender: FDA-Public Use
  Company Number: 2009AP001352

PATIENT
  Sex: Male

DRUGS (1)
  1. RISPERIDONE [Suspect]
     Indication: PARKINSON'S DISEASE
     Dosage: PO
     Route: 048

REACTIONS (4)
  - BALANCE DISORDER [None]
  - GAIT DISTURBANCE [None]
  - HALLUCINATION [None]
  - WITHDRAWAL SYNDROME [None]
